FAERS Safety Report 23045827 (Version 1)
Quarter: 2023Q4

REPORT INFORMATION
  Report Type: Spontaneous
  Country: US (occurrence: US)
  Receive Date: 20231009
  Receipt Date: 20231009
  Transmission Date: 20240110
  Serious: Yes (Other)
  Sender: FDA-Public Use
  Company Number: US-OPELLA-2023OHG010025

PATIENT

DRUGS (2)
  1. TALC [Suspect]
     Active Substance: TALC
  2. FORMALDEHYDE [Concomitant]
     Active Substance: FORMALDEHYDE

REACTIONS (4)
  - Pleural mesothelioma [Unknown]
  - Anxiety [Unknown]
  - Pain [Unknown]
  - Exposure to chemical pollution [Unknown]
